FAERS Safety Report 24468322 (Version 2)
Quarter: 2024Q4

REPORT INFORMATION
  Report Type: Spontaneous
  Country: BR (occurrence: BR)
  Receive Date: 20241018
  Receipt Date: 20241106
  Transmission Date: 20250115
  Serious: Yes (Other)
  Sender: RANBAXY
  Company Number: BR-SUN PHARMACEUTICAL INDUSTRIES LTD-2024R1-474091

PATIENT
  Age: 13 Year
  Sex: Female

DRUGS (7)
  1. TACROLIMUS [Suspect]
     Active Substance: TACROLIMUS
     Indication: Porphyria non-acute
     Route: 065
  2. TACROLIMUS [Suspect]
     Active Substance: TACROLIMUS
     Indication: Immunosuppression
  3. METHOTREXATE [Suspect]
     Active Substance: METHOTREXATE
     Indication: Porphyria non-acute
     Route: 065
  4. METHYLPREDNISOLONE [Suspect]
     Active Substance: METHYLPREDNISOLONE
     Indication: Immunosuppression
     Dosage: UNK
     Route: 065
  5. BUSULFAN [Suspect]
     Active Substance: BUSULFAN
     Indication: Porphyria non-acute
     Route: 065
  6. CYCLOPHOSPHAMIDE [Suspect]
     Active Substance: CYCLOPHOSPHAMIDE
     Indication: Porphyria non-acute
     Route: 065
  7. SIROLIMUS [Suspect]
     Active Substance: SIROLIMUS
     Indication: Immunosuppression
     Dosage: UNK
     Route: 065

REACTIONS (9)
  - Chimerism [Unknown]
  - Thrombotic microangiopathy [Unknown]
  - Acute kidney injury [Unknown]
  - Febrile neutropenia [Unknown]
  - Klebsiella infection [Unknown]
  - Herpes simplex [Unknown]
  - Cytomegalovirus infection reactivation [Unknown]
  - Toxicity to various agents [Unknown]
  - Cardiac septal hypertrophy [Unknown]
